FAERS Safety Report 10027502 (Version 1)
Quarter: 2014Q1

REPORT INFORMATION
  Report Type: Spontaneous
  Country: US (occurrence: US)
  Receive Date: 20140321
  Receipt Date: 20140321
  Transmission Date: 20141002
  Serious: No
  Sender: FDA-Public Use
  Company Number: US-PFIZER INC-2014080342

PATIENT
  Age: 70 Year
  Sex: Female
  Weight: 68 kg

DRUGS (5)
  1. CHANTIX [Suspect]
     Indication: SMOKING CESSATION THERAPY
     Dosage: UNK
     Dates: start: 2014, end: 2014
  2. CHANTIX [Suspect]
     Dosage: UNK
     Dates: start: 2014
  3. LOVASTATIN [Concomitant]
     Dosage: 20 MG, UNK
  4. CITALOPRAM [Concomitant]
     Dosage: 40 MG, UNK
  5. LOSARTAN AND HYDROCHLOROTHIAZIDE [Concomitant]
     Dosage: LOSARTAN/HYDROCHLOROTHIAZIDE 50/12.5 MG; UNK

REACTIONS (1)
  - Drug effect incomplete [Unknown]
